FAERS Safety Report 5735697-7 (Version None)
Quarter: 2008Q2

REPORT INFORMATION
  Report Type: 
  Country: None (occurrence: None)
  Receive Date: 20080512
  Receipt Date: 20080430
  Transmission Date: 20081010
  Serious: Yes (Other)
  Sender: FDA-Public Use
  Company Number: US-MERCK-0805USA00126

PATIENT
  Age: 69 Year
  Sex: Female

DRUGS (7)
  1. FOSAMAX PLUS D [Suspect]
     Indication: OSTEOPOROSIS
     Route: 048
  2. ADVAIR DISKUS 100/50 [Concomitant]
     Route: 065
  3. COUMADIN [Concomitant]
     Route: 065
  4. SOTALOL HYDROCHLORIDE [Concomitant]
     Route: 065
  5. HYDROCHLORIC ACID [Concomitant]
     Route: 065
  6. DIGOXIN [Concomitant]
     Route: 065
  7. METHIMAZOLE [Concomitant]
     Route: 065

REACTIONS (4)
  - ATRIAL FIBRILLATION [None]
  - COUGH [None]
  - EYE DISORDER [None]
  - THYROID DISORDER [None]
